FAERS Safety Report 5957906-1 (Version None)
Quarter: 2008Q4

REPORT INFORMATION
  Report Type: 
  Country: None (occurrence: None)
  Receive Date: 20081119
  Receipt Date: 20081113
  Transmission Date: 20090506
  Serious: Yes (Disabling, Other)
  Sender: FDA-Public Use
  Company Number: US-BAYER-200715026NA

PATIENT
  Sex: Male

DRUGS (1)
  1. CIPRO [Suspect]
     Indication: URINARY TRACT INFECTION
     Dosage: TOTAL DAILY DOSE: 1 G  UNIT DOSE: 500 MG

REACTIONS (4)
  - ARTHRALGIA [None]
  - DISABILITY [None]
  - NERVE INJURY [None]
  - UNEVALUABLE EVENT [None]
